FAERS Safety Report 8097180-6 (Version None)
Quarter: 2012Q1

REPORT INFORMATION
  Report Type: 
  Country: None (occurrence: None)
  Receive Date: 20120128
  Receipt Date: 20110714
  Transmission Date: 20120608
  Serious: No
  Sender: FDA-Public Use
  Company Number: US-ABBOTT-11P-163-0839124-00

PATIENT
  Age: 16 Year
  Sex: Male

DRUGS (4)
  1. FLOVENT [Concomitant]
     Indication: ASTHMA
  2. HUMIRA [Suspect]
     Indication: CROHN'S DISEASE
     Dates: start: 20110119
  3. HUMIRA [Suspect]
     Dates: start: 20110601
  4. MULTI-VITAMIN [Concomitant]
     Indication: VITAMIN SUPPLEMENTATION

REACTIONS (2)
  - SKIN IRRITATION [None]
  - CROHN'S DISEASE [None]
